FAERS Safety Report 8903506 (Version 1)
Quarter: 2012Q4

REPORT INFORMATION
  Report Type: 
  Country: US (occurrence: US)
  Receive Date: 20121113
  Receipt Date: 20121113
  Transmission Date: 20130627
  Serious: No
  Sender: FDA-Public Use
  Company Number: US-PFIZER INC-2012282766

PATIENT

DRUGS (1)
  1. EFFEXOR XR [Suspect]
     Dosage: 150 mg, 1x/day

REACTIONS (2)
  - Paraesthesia [Unknown]
  - Gastric disorder [Unknown]
